FAERS Safety Report 7572052-1 (Version None)
Quarter: 2011Q2

REPORT INFORMATION
  Report Type: 
  Country: None (occurrence: None)
  Receive Date: 20110624
  Receipt Date: 20110622
  Transmission Date: 20111010
  Serious: Yes (Hospitalization)
  Sender: FDA-Public Use
  Company Number: US-BRISTOL-MYERS SQUIBB COMPANY-15690365

PATIENT
  Age: 8 Year
  Sex: Female

DRUGS (2)
  1. TACROLIMUS [Interacting]
  2. COUMADIN [Suspect]
     Indication: MITRAL VALVE REPLACEMENT
     Route: 048
     Dates: start: 20101201

REACTIONS (8)
  - INTERNATIONAL NORMALISED RATIO ABNORMAL [None]
  - DRUG INTERACTION [None]
  - FATIGUE [None]
  - NAUSEA [None]
  - BLOOD UREA INCREASED [None]
  - NASOPHARYNGITIS [None]
  - BLOOD CREATININE INCREASED [None]
  - DIARRHOEA [None]
